FAERS Safety Report 4578139-X (Version None)
Quarter: 2005Q1

REPORT INFORMATION
  Report Type: 
  Country: None (occurrence: None)
  Receive Date: 20050202
  Receipt Date: 20050202
  Transmission Date: 20050727
  Serious: Yes (Other)
  Sender: FDA-Public Use
  Company Number: None

PATIENT
  Age: 60 Year
  Sex: Female
  Weight: 73.9363 kg

DRUGS (2)
  1. PAROXETINE HCL [Suspect]
     Dosage: 50 MG PO QD
     Route: 048
     Dates: start: 20041201, end: 20050106
  2. BUSPIRONE  5MG [Suspect]
     Dosage: 5 MG PO BID
     Route: 048
     Dates: start: 20041201, end: 20050106

REACTIONS (6)
  - ANXIETY [None]
  - DISTURBANCE IN SOCIAL BEHAVIOUR [None]
  - HEART RATE INCREASED [None]
  - NAUSEA [None]
  - PHARMACEUTICAL PRODUCT COMPLAINT [None]
  - TREMOR [None]
